FAERS Safety Report 18228092 (Version 1)
Quarter: 2020Q3

REPORT INFORMATION
  Report Type: Spontaneous
  Country: US (occurrence: US)
  Receive Date: 20200903
  Receipt Date: 20200903
  Transmission Date: 20201103
  Serious: No
  Sender: FDA-Public Use
  Company Number: US-TAKEDA-2020TUS036663

PATIENT
  Sex: Female

DRUGS (2)
  1. TRINTELLIX [Suspect]
     Active Substance: VORTIOXETINE HYDROBROMIDE
     Dosage: UNK
     Route: 065
     Dates: start: 20200728, end: 20200805
  2. TRINTELLIX [Suspect]
     Active Substance: VORTIOXETINE HYDROBROMIDE
     Indication: MAJOR DEPRESSION
     Dosage: 5 MILLIGRAM
     Route: 065
     Dates: start: 20200708, end: 20200727

REACTIONS (11)
  - Gait disturbance [Unknown]
  - Dry skin [Unknown]
  - Wrong technique in product usage process [Unknown]
  - Polydipsia psychogenic [Not Recovered/Not Resolved]
  - Dry mouth [Unknown]
  - Somnolence [Unknown]
  - Vulvovaginal dryness [Unknown]
  - Neurological symptom [Unknown]
  - Hyponatraemia [Not Recovered/Not Resolved]
  - Hypomania [Not Recovered/Not Resolved]
  - Dry eye [Unknown]
